FAERS Safety Report 14305128 (Version 1)
Quarter: 2017Q4

REPORT INFORMATION
  Report Type: Spontaneous
  Country: JP (occurrence: JP)
  Receive Date: 20171219
  Receipt Date: 20171219
  Transmission Date: 20180321
  Serious: Yes (Death, Other)
  Sender: FDA-Public Use
  Company Number: JP-OTSUKA-BJ20070862

PATIENT
  Age: 16 Year
  Sex: Female
  Weight: 60 kg

DRUGS (10)
  1. CONTOMIN [Suspect]
     Active Substance: CHLORPROMAZINE
     Indication: SEDATION
     Dosage: 50 MG, QD
     Route: 048
     Dates: start: 20070410, end: 20070410
  2. LORAZEPAM. [Concomitant]
     Active Substance: LORAZEPAM
     Indication: ANXIETY
     Dosage: 1 MG, UNK
     Route: 048
     Dates: start: 20070402, end: 20070410
  3. CONTOMIN [Suspect]
     Active Substance: CHLORPROMAZINE
     Indication: INSOMNIA
     Dosage: 12.5 MG, QD
     Route: 048
     Dates: start: 20070405, end: 20070409
  4. AMOBANTES [Concomitant]
     Indication: INSOMNIA
     Dosage: 7.5 MG, QD
     Route: 048
     Dates: start: 20070402, end: 20070404
  5. ZOPICLONE [Concomitant]
     Active Substance: ZOPICLONE
     Indication: INSOMNIA
     Dosage: ON 7.5 MG FROM 02-APR-07 TO 04-APR-07; THEN 7.5 MG FROM 10-APR-07 TO 10-APR-07
     Route: 048
     Dates: start: 20070402, end: 20070410
  6. CHLORPROMAZINE HIBENZATE [Suspect]
     Active Substance: CHLORPROMAZINE HIBENZATE
     Indication: SEDATION
     Dosage: DOSE INCREASED TO 50 MG/DAY ON 10-APR-2007
     Route: 048
     Dates: start: 20070405, end: 20070410
  7. WYPAX [Concomitant]
     Active Substance: LORAZEPAM
     Indication: ANXIETY
     Dosage: 1 MG, QD
     Route: 048
     Dates: start: 20070402, end: 20070410
  8. ABILIFY [Suspect]
     Active Substance: ARIPIPRAZOLE
     Indication: SCHIZOPHRENIA
     Dosage: 6 MG, QD
     Route: 048
     Dates: start: 20070402, end: 20070404
  9. AMOBANTES [Concomitant]
     Dosage: 7.5 MG, QD
     Route: 048
     Dates: start: 20070410, end: 20070410
  10. ABILIFY [Suspect]
     Active Substance: ARIPIPRAZOLE
     Dosage: 12 MG, QD
     Route: 048
     Dates: start: 20070405, end: 20070410

REACTIONS (1)
  - Sudden death [Fatal]

NARRATIVE: CASE EVENT DATE: 20070411
